FAERS Safety Report 7852319-X (Version None)
Quarter: 2011Q4

REPORT INFORMATION
  Report Type: 
  Country: None (occurrence: None)
  Receive Date: 20111026
  Receipt Date: 20111014
  Transmission Date: 20120403
  Serious: Yes (Hospitalization)
  Sender: FDA-Public Use
  Company Number: US-ELI_LILLY_AND_COMPANY-US201110004408

PATIENT
  Sex: Female

DRUGS (9)
  1. CENTRUM SILVER [Concomitant]
  2. OSCAL [Concomitant]
  3. ADVAIR DISKUS 100/50 [Concomitant]
  4. FORTEO [Suspect]
     Indication: OSTEOPOROSIS
     Dosage: 20 UG, QD
  5. MECLIZINE [Concomitant]
     Dosage: 25 MG, UNK
  6. OMEPRAZOLE [Concomitant]
     Dosage: 20 MG, UNK
  7. SIMVASTATIN [Concomitant]
  8. FEXOFENADINE [Concomitant]
  9. DICLOFENAC POTASSIUM [Concomitant]

REACTIONS (2)
  - FATIGUE [None]
  - SPINAL FRACTURE [None]
